FAERS Safety Report 6855605-5 (Version None)
Quarter: 2010Q3

REPORT INFORMATION
  Report Type: 
  Country: None (occurrence: None)
  Receive Date: 20100719
  Receipt Date: 20100628
  Transmission Date: 20110219
  Serious: Yes (Other)
  Sender: FDA-Public Use
  Company Number: IE-BAYER-201030321GPV

PATIENT
  Age: 35 Year
  Sex: Female

DRUGS (1)
  1. MIRENA [Suspect]
     Indication: CONTRACEPTION
     Route: 015
     Dates: start: 20091005, end: 20091001

REACTIONS (4)
  - DEVICE EXPULSION [None]
  - GESTATIONAL DIABETES [None]
  - PREGNANCY WITH CONTRACEPTIVE DEVICE [None]
  - RENAL IMPAIRMENT [None]
